FAERS Safety Report 22016380 (Version 12)
Quarter: 2025Q2

REPORT INFORMATION
  Report Type: Report from Study
  Country: US (occurrence: US)
  Receive Date: 20230221
  Receipt Date: 20250414
  Transmission Date: 20250716
  Serious: Yes (Hospitalization, Other)
  Sender: TAKEDA
  Company Number: US-TAKEDA-2023TUS004473

PATIENT
  Sex: Female
  Weight: 54 kg

DRUGS (37)
  1. LANADELUMAB [Suspect]
     Active Substance: LANADELUMAB
     Indication: Immune system disorder
     Dosage: 300 MILLIGRAM, Q2WEEKS
     Dates: start: 20221224
  2. LANADELUMAB [Suspect]
     Active Substance: LANADELUMAB
  3. LANADELUMAB [Suspect]
     Active Substance: LANADELUMAB
  4. XOLAIR [Suspect]
     Active Substance: OMALIZUMAB
     Indication: Product used for unknown indication
  5. ADDERALL [Concomitant]
     Active Substance: AMPHETAMINE ASPARTATE\AMPHETAMINE SULFATE\DEXTROAMPHETAMINE SACCHARATE\DEXTROAMPHETAMINE SULFATE
  6. CATAPRES-TTS [Concomitant]
     Active Substance: CLONIDINE
  7. XGEVA [Concomitant]
     Active Substance: DENOSUMAB
  8. SINGULAIR [Concomitant]
     Active Substance: MONTELUKAST SODIUM
  9. PROZAC [Concomitant]
     Active Substance: FLUOXETINE HYDROCHLORIDE
  10. LOVENOX [Concomitant]
     Active Substance: ENOXAPARIN SODIUM
  11. MIDODRINE HYDROCHLORIDE [Concomitant]
     Active Substance: MIDODRINE HYDROCHLORIDE
  12. ZYRTEC [Concomitant]
     Active Substance: CETIRIZINE HYDROCHLORIDE
  13. PEPCID [Concomitant]
     Active Substance: FAMOTIDINE
  14. EPINEPHRINE [Concomitant]
     Active Substance: EPINEPHRINE
  15. MAGNESIUM [Concomitant]
     Active Substance: MAGNESIUM
  16. POTASSIUM CHLORIDE [Concomitant]
     Active Substance: POTASSIUM CHLORIDE
  17. RIBOFLAVIN [Concomitant]
     Active Substance: RIBOFLAVIN
  18. Citracal plus d [Concomitant]
  19. PREDNISONE [Concomitant]
     Active Substance: PREDNISONE
  20. SOLU-CORTEF [Concomitant]
     Active Substance: HYDROCORTISONE SODIUM SUCCINATE
  21. RISPERIDONE [Concomitant]
     Active Substance: RISPERIDONE
  22. HYDROXYCHLOROQUINE SULFATE [Concomitant]
     Active Substance: HYDROXYCHLOROQUINE SULFATE
  23. SPIRIVA [Concomitant]
     Active Substance: TIOTROPIUM BROMIDE MONOHYDRATE
  24. MIRALAX [Concomitant]
     Active Substance: POLYETHYLENE GLYCOL 3350
  25. BERINERT [Concomitant]
     Active Substance: HUMAN C1-ESTERASE INHIBITOR
  26. TUMS [Concomitant]
     Active Substance: CALCIUM CARBONATE
  27. CYPROHEPTADINE HYDROCHLORIDE [Concomitant]
     Active Substance: CYPROHEPTADINE HYDROCHLORIDE
  28. ADVAIR HFA [Concomitant]
     Active Substance: FLUTICASONE PROPIONATE\SALMETEROL XINAFOATE
  29. GASTROCROM [Concomitant]
     Active Substance: CROMOLYN SODIUM
  30. ONDANSETRON [Concomitant]
     Active Substance: ONDANSETRON
  31. ATENOLOL [Concomitant]
     Active Substance: ATENOLOL
  32. HYDROXYZINE HYDROCHLORIDE [Concomitant]
     Active Substance: HYDROXYZINE HYDROCHLORIDE
  33. COENZYME Q10 [Concomitant]
     Active Substance: DIETARY SUPPLEMENT\UBIDECARENONE
  34. SODIUM CHLORIDE [Concomitant]
     Active Substance: SODIUM CHLORIDE
  35. ALBUTEROL SULFATE [Concomitant]
     Active Substance: ALBUTEROL SULFATE
  36. SPIRIVA RESPIMAT [Concomitant]
     Active Substance: TIOTROPIUM BROMIDE
  37. EPIPEN [Concomitant]
     Active Substance: EPINEPHRINE

REACTIONS (12)
  - Blood disorder [Unknown]
  - Angioedema [Unknown]
  - COVID-19 [Not Recovered/Not Resolved]
  - Femur fracture [Unknown]
  - Multiple fractures [Unknown]
  - Anaphylactic reaction [Not Recovered/Not Resolved]
  - Hereditary angioedema [Not Recovered/Not Resolved]
  - Hypersensitivity [Unknown]
  - Product dose omission issue [Unknown]
  - Osteoporosis [Unknown]
  - Lower limb fracture [Unknown]
  - Pain in extremity [Unknown]
